FAERS Safety Report 5536337-2 (Version None)
Quarter: 2007Q4

REPORT INFORMATION
  Report Type: 
  Country: None (occurrence: None)
  Receive Date: 20071206
  Receipt Date: 20071126
  Transmission Date: 20080405
  Serious: Yes (Disabling)
  Sender: FDA-Public Use
  Company Number: GB-PFIZER INC-2007099709

PATIENT
  Age: 80 Year
  Sex: Female

DRUGS (1)
  1. ATORVASTATIN [Suspect]
     Indication: MYOCARDIAL ISCHAEMIA

REACTIONS (3)
  - COORDINATION ABNORMAL [None]
  - DYSKINESIA [None]
  - NEUROPATHY PERIPHERAL [None]
